APPROVED DRUG PRODUCT: TROPICAMIDE
Active Ingredient: TROPICAMIDE
Strength: 1%
Dosage Form/Route: SOLUTION/DROPS;OPHTHALMIC
Application: A040064 | Product #001 | TE Code: AT
Applicant: BAUSCH AND LOMB PHARMACEUTICALS INC
Approved: Jul 27, 1994 | RLD: No | RS: No | Type: RX